FAERS Safety Report 8902144 (Version 3)
Quarter: 2013Q1

REPORT INFORMATION
  Report Type: Spontaneous
  Country: US (occurrence: US)
  Receive Date: 20121112
  Receipt Date: 20130117
  Transmission Date: 20140127
  Serious: Yes (Other)
  Sender: FDA-Public Use
  Company Number: US-PFIZER INC-2012277913

PATIENT
  Age: 59 Year
  Sex: Female
  Weight: 83.9 kg

DRUGS (2)
  1. PREMARIN [Suspect]
     Indication: MENOPAUSAL SYMPTOMS
     Dosage: 0.6 MG, UNK
     Route: 048
     Dates: start: 198511
  2. PREMARIN [Suspect]
     Dosage: 0.3 MG, ONE DAILY FOR 3 WEEKS THEN 1 WEEK OFF AND RESUME

REACTIONS (8)
  - Rheumatoid arthritis [Unknown]
  - Osteoarthritis [Unknown]
  - Colitis [Unknown]
  - Pulmonary hypertension [Unknown]
  - Hypertension [Unknown]
  - Arthropathy [Unknown]
  - Thyroid disorder [Unknown]
  - Alopecia [Unknown]
